FAERS Safety Report 19467401 (Version 1)
Quarter: 2021Q2

REPORT INFORMATION
  Report Type: Spontaneous
  Country: CN (occurrence: CN)
  Receive Date: 20210628
  Receipt Date: 20210628
  Transmission Date: 20210717
  Serious: Yes (Hospitalization)
  Sender: FDA-Public Use
  Company Number: CN-ROCHE-2854515

PATIENT
  Age: 67 Year
  Sex: Male
  Weight: 45 kg

DRUGS (1)
  1. ALECENSA [Suspect]
     Active Substance: ALECTINIB HYDROCHLORIDE
     Indication: LUNG ADENOCARCINOMA
     Route: 048
     Dates: start: 20210329, end: 20210528

REACTIONS (14)
  - Myositis [Recovering/Resolving]
  - Cough [Recovering/Resolving]
  - Ill-defined disorder [Recovering/Resolving]
  - Ataxia [Recovering/Resolving]
  - Psychotic disorder [Recovering/Resolving]
  - Hepatic function abnormal [Recovering/Resolving]
  - Dysphoria [Recovering/Resolving]
  - Tachypnoea [Recovering/Resolving]
  - Muscle tightness [Recovering/Resolving]
  - Tendon disorder [Recovering/Resolving]
  - Fatigue [Recovering/Resolving]
  - Muscle disorder [Recovering/Resolving]
  - Productive cough [Recovering/Resolving]
  - Irritability [Recovering/Resolving]
